FAERS Safety Report 7213033-7 (Version None)
Quarter: 2011Q1

REPORT INFORMATION
  Report Type: 
  Country: None (occurrence: None)
  Receive Date: 20110106
  Receipt Date: 20101224
  Transmission Date: 20110831
  Serious: Yes (Other)
  Sender: FDA-Public Use
  Company Number: B0685248A

PATIENT
  Age: 51 Year
  Sex: Female

DRUGS (1)
  1. BECONASE [Suspect]
     Indication: RHINITIS ALLERGIC
     Route: 065
     Dates: start: 20100801

REACTIONS (3)
  - DRUG INEFFECTIVE [None]
  - ANOSMIA [None]
  - PRODUCT QUALITY ISSUE [None]
